FAERS Safety Report 7077520-7 (Version None)
Quarter: 2010Q4

REPORT INFORMATION
  Report Type: 
  Country: None (occurrence: None)
  Receive Date: 20101101
  Receipt Date: 20101014
  Transmission Date: 20110411
  Serious: No
  Sender: FDA-Public Use
  Company Number: US-ASTRAZENECA-2010SE49200

PATIENT
  Age: 51 Year
  Sex: Female

DRUGS (6)
  1. METOPROLOL SUCCINATE [Suspect]
     Route: 048
  2. PRILOSEC [Suspect]
     Route: 048
  3. SEROQUEL [Suspect]
     Indication: DEPRESSION
     Route: 048
  4. LITHIUM [Suspect]
  5. ROZEREM [Suspect]
  6. AMLODIPINE BESYLATE [Suspect]
     Indication: HYPERTENSION

REACTIONS (7)
  - ANAEMIA [None]
  - CARDIAC DISORDER [None]
  - DEPRESSION [None]
  - GASTRITIS [None]
  - HEART VALVE INCOMPETENCE [None]
  - HYPERTENSION [None]
  - TACHYCARDIA [None]
